FAERS Safety Report 10932435 (Version 3)
Quarter: 2015Q2

REPORT INFORMATION
  Report Type: Spontaneous
  Country: US (occurrence: None)
  Receive Date: 20150318
  Receipt Date: 20150528
  Transmission Date: 20150821
  Serious: Yes (Hospitalization)
  Sender: FDA-Public Use
  Company Number: US-001709

PATIENT
  Sex: Male

DRUGS (2)
  1. GATTEX [Suspect]
     Active Substance: TEDUGLUTIDE\WATER
     Indication: SHORT-BOWEL SYNDROME
     Dosage: ([DF] SUBCUTANEOUS)
     Route: 058
     Dates: start: 20140807
  2. SOLUTIONS FOR PARENTERAL NUTRITION [Concomitant]
     Active Substance: AMINO ACIDS\DEXTROSE\ELECTROLYTES NOS

REACTIONS (7)
  - Disease recurrence [None]
  - Dehydration [None]
  - Pruritus [None]
  - Iron deficiency [None]
  - Device related infection [None]
  - Sepsis [None]
  - Clostridium difficile infection [None]
